FAERS Safety Report 10789776 (Version 1)
Quarter: 2015Q1

REPORT INFORMATION
  Report Type: Spontaneous
  Country: FI (occurrence: FI)
  Receive Date: 20150212
  Receipt Date: 20150212
  Transmission Date: 20150721
  Serious: Yes (Hospitalization)
  Sender: FDA-Public Use
  Company Number: FI-BAYER-2015-020838

PATIENT
  Age: 19 Year
  Sex: Female

DRUGS (1)
  1. YAZ [Suspect]
     Active Substance: DROSPIRENONE\ETHINYL ESTRADIOL
     Dosage: UNK
     Dates: start: 201501, end: 20150209

REACTIONS (5)
  - Ketosis [Recovering/Resolving]
  - Nausea [None]
  - Vomiting [None]
  - Dizziness [Recovering/Resolving]
  - Dyspnoea [None]

NARRATIVE: CASE EVENT DATE: 201502
